FAERS Safety Report 18558725 (Version 1)
Quarter: 2020Q4

REPORT INFORMATION
  Report Type: Spontaneous
  Country: US (occurrence: US)
  Receive Date: 20201130
  Receipt Date: 20201130
  Transmission Date: 20210114
  Serious: Yes (Hospitalization, Other)
  Sender: FDA-Public Use
  Company Number: US-LUPIN PHARMACEUTICALS INC.-2020-09445

PATIENT
  Age: 74 Year
  Sex: Male

DRUGS (7)
  1. PEPCID [Concomitant]
     Active Substance: FAMOTIDINE
     Indication: ANAPHYLACTIC REACTION
     Dosage: 40 MILLIGRAM
     Route: 065
  2. METOPROLOL. [Suspect]
     Active Substance: METOPROLOL
     Indication: HYPERTENSION
     Dosage: 200 MILLIGRAM, BID
     Route: 065
  3. SOLU-MEDROL [Concomitant]
     Active Substance: METHYLPREDNISOLONE SODIUM SUCCINATE
     Indication: ANAPHYLACTIC REACTION
     Dosage: 125 MILLIGRAM
     Route: 042
  4. LISINOPRIL. [Suspect]
     Active Substance: LISINOPRIL
     Indication: HYPERTENSION
     Dosage: 2.5 MILLIGRAM, QD
     Route: 065
  5. EPINEPHRINE. [Concomitant]
     Active Substance: EPINEPHRINE
     Dosage: UNK, DRIP
     Route: 065
  6. BENADRYL [Concomitant]
     Active Substance: DIPHENHYDRAMINE HYDROCHLORIDE
     Indication: ANAPHYLACTIC REACTION
     Route: 042
  7. EPINEPHRINE. [Concomitant]
     Active Substance: EPINEPHRINE
     Indication: ANAPHYLACTIC REACTION
     Dosage: 0.3 MILLIGRAM
     Route: 030

REACTIONS (2)
  - BRASH syndrome [Recovered/Resolved]
  - Anaphylactic reaction [Recovered/Resolved]
